FAERS Safety Report 9885192 (Version 1)
Quarter: 2014Q1

REPORT INFORMATION
  Report Type: Spontaneous
  Country: US (occurrence: None)
  Receive Date: 20140207
  Receipt Date: 20140207
  Transmission Date: 20141002
  Serious: Yes (Life-Threatening)
  Sender: FDA-Public Use
  Company Number: None

PATIENT
  Age: 97 None
  Sex: Male
  Weight: 97.3 kg

DRUGS (1)
  1. GLEEVEC [Suspect]
     Indication: LEUKAEMIA
     Route: 048
     Dates: start: 201206

REACTIONS (1)
  - Myocardial infarction [None]
